FAERS Safety Report 10051575 (Version 1)
Quarter: 2014Q2

REPORT INFORMATION
  Report Type: Spontaneous
  Country: DK (occurrence: GB)
  Receive Date: 20140401
  Receipt Date: 20140401
  Transmission Date: 20141212
  Serious: Yes (Congenital Anomaly)
  Sender: FDA-Public Use
  Company Number: GB-FRI-1000066087

PATIENT
  Sex: 0

DRUGS (2)
  1. CITALOPRAM [Suspect]
     Dosage: 30 MG
     Route: 064
  2. CITALOPRAM [Suspect]
     Dosage: 10 MG
     Route: 064

REACTIONS (2)
  - Fallot^s tetralogy [Unknown]
  - Foetal exposure during pregnancy [Unknown]
